FAERS Safety Report 6719980-4 (Version None)
Quarter: 2010Q2

REPORT INFORMATION
  Report Type: 
  Country: None (occurrence: None)
  Receive Date: 20100511
  Receipt Date: 20100506
  Transmission Date: 20101027
  Serious: Yes (Hospitalization)
  Sender: FDA-Public Use
  Company Number: DE-MERCK-0901DEU00114

PATIENT
  Age: 86 Year
  Sex: Male

DRUGS (12)
  1. FOSAMAX [Suspect]
     Indication: METASTASES TO BONE
     Route: 048
     Dates: start: 20040101, end: 20080814
  2. ASPIRIN [Suspect]
     Indication: CORONARY ARTERY DISEASE
     Route: 048
     Dates: start: 20080802, end: 20080814
  3. ASPIRIN [Suspect]
     Route: 048
     Dates: end: 20080701
  4. CLOPIDOGREL BISULFATE [Suspect]
     Indication: STENT PLACEMENT
     Route: 048
     Dates: start: 20080401, end: 20080814
  5. METOPROLOL SUCCINATE [Concomitant]
     Indication: HYPERTENSION
     Route: 048
     Dates: end: 20080814
  6. CALCIUM CARBONATE AND CHOLECALCIFEROL [Concomitant]
     Indication: METASTASES TO BONE
     Route: 048
  7. RAMIPRIL [Concomitant]
     Indication: HYPERTENSION
     Route: 048
     Dates: end: 20080814
  8. POLYETHYLENE GLYCOL 3350 AND POTASSIUM CHLORIDE AND SODIUM BICARBONATE [Concomitant]
     Indication: CONSTIPATION
     Route: 048
  9. PANTOPRAZOLE SODIUM [Concomitant]
     Indication: COLITIS
     Route: 041
     Dates: start: 20080707, end: 20080818
  10. PANTOPRAZOLE SODIUM [Concomitant]
     Route: 048
     Dates: start: 20080819
  11. FUROSEMIDE AND SPIRONOLACTONE [Concomitant]
     Indication: HYPERTENSION
     Route: 048
     Dates: end: 20080814
  12. ZOLEDRONIC ACID [Concomitant]
     Indication: METASTASES TO BONE
     Route: 041
     Dates: start: 20040101

REACTIONS (1)
  - UPPER GASTROINTESTINAL HAEMORRHAGE [None]
